FAERS Safety Report 14892111 (Version 1)
Quarter: 2018Q2

REPORT INFORMATION
  Report Type: Spontaneous
  Country: TH (occurrence: TH)
  Receive Date: 20180514
  Receipt Date: 20180514
  Transmission Date: 20180711
  Serious: Yes (Hospitalization)
  Sender: FDA-Public Use
  Company Number: TH-SA-2018SA129154

PATIENT
  Age: 56 Year
  Sex: Male

DRUGS (3)
  1. LANTUS [Suspect]
     Active Substance: INSULIN GLARGINE
     Indication: TYPE 2 DIABETES MELLITUS
     Dosage: DOSE:14 UNIT(S)
     Route: 058
  2. NOVOMIX [Concomitant]
     Active Substance: INSULIN ASPART
     Indication: DIABETES MELLITUS
     Dosage: DOSE:20 UNIT(S)
     Route: 065
  3. NOVOMIX [Concomitant]
     Active Substance: INSULIN ASPART
     Indication: DIABETES MELLITUS
     Dosage: DOSE: 12 UNITS BEFORE BREAKFAST AND 6 UNITS BEFORE DINNER (12-0-6)
     Route: 065

REACTIONS (5)
  - Hypoglycaemia [Recovered/Resolved]
  - Insulin autoimmune syndrome [Recovering/Resolving]
  - Hyperinsulinaemic hypoglycaemia [Not Recovered/Not Resolved]
  - Anti-insulin antibody positive [Not Recovered/Not Resolved]
  - Hyperglycaemia [Unknown]
